FAERS Safety Report 5579995-9 (Version None)
Quarter: 2007Q4

REPORT INFORMATION
  Report Type: 
  Country: None (occurrence: None)
  Receive Date: 20071226
  Receipt Date: 20071213
  Transmission Date: 20080405
  Serious: Yes (Death, Hospitalization)
  Sender: FDA-Public Use
  Company Number: WAES 0712USA06721

PATIENT
  Age: 78 Year
  Sex: Male

DRUGS (6)
  1. PRINIVIL [Suspect]
     Dosage: PO
     Route: 048
     Dates: start: 20070101
  2. AIRTAL (ACECLOFENAC) [Suspect]
     Dosage: PO
     Route: 048
     Dates: start: 20070101
  3. FUROSEMIDE [Suspect]
     Dosage: PO
     Route: 048
     Dates: start: 20070101
  4. METHOTREXATE SODIUM [Suspect]
     Dosage: 0.1439 MG/ML/WKY PO
     Route: 048
     Dates: start: 20070101, end: 20070329
  5. TAB ZYLORIC (ALLOPURINOL) [Suspect]
     Dosage: PO
     Route: 048
     Dates: start: 20070101
  6. ACFOL [Concomitant]

REACTIONS (4)
  - ANOREXIA [None]
  - BONE MARROW FAILURE [None]
  - COLD SWEAT [None]
  - PANCYTOPENIA [None]
